FAERS Safety Report 5901905-2 (Version None)
Quarter: 2008Q3

REPORT INFORMATION
  Report Type: 
  Country: None (occurrence: None)
  Receive Date: 20080925
  Receipt Date: 20080827
  Transmission Date: 20090109
  Serious: No
  Sender: FDA-Public Use
  Company Number: ADE# 08-140

PATIENT
  Sex: Male
  Weight: 56.246 kg

DRUGS (2)
  1. AMIFOSTINE [Suspect]
     Indication: RADIOTHERAPY
     Dosage: SEE B.5.
     Dates: start: 20080801
  2. ERBITUX [Concomitant]

REACTIONS (2)
  - HYPOAESTHESIA [None]
  - PARAESTHESIA [None]
